FAERS Safety Report 6752335-5 (Version None)
Quarter: 2010Q2

REPORT INFORMATION
  Report Type: 
  Country: None (occurrence: None)
  Receive Date: 20100602
  Receipt Date: 20100531
  Transmission Date: 20101027
  Serious: Yes (Life-Threatening, Hospitalization)
  Sender: FDA-Public Use
  Company Number: GXKR2009DE08038

PATIENT
  Age: 77 Year
  Sex: Female
  Weight: 71 kg

DRUGS (13)
  1. PREDNISOLONE (NGX) [Suspect]
     Indication: RHEUMATOID ARTHRITIS
     Dosage: 15 MG, QD
     Route: 048
     Dates: start: 20060901
  2. VERAPAMIL (NGX) [Interacting]
     Indication: ATRIAL FIBRILLATION
     Dosage: 240 MG, QD
     Route: 048
     Dates: start: 20060101, end: 20090514
  3. VOLTAREN [Suspect]
     Indication: RHEUMATOID ARTHRITIS
     Dosage: 75 MG, BID
     Route: 048
     Dates: start: 20060901, end: 20090516
  4. DIGITOXIN [Interacting]
     Indication: ATRIAL FIBRILLATION
     Dosage: 0.07 MG, QD
     Route: 048
     Dates: start: 20070901, end: 20090514
  5. AZITHROMYCIN ABZ [Interacting]
     Indication: BRONCHITIS
     Dosage: UNK
     Route: 048
     Dates: start: 20090501, end: 20090511
  6. ACETYLSALICYLATE [Concomitant]
     Route: 048
  7. AMBROXOL [Concomitant]
     Route: 048
  8. CALCIUM D3 ^STADA^ [Concomitant]
     Route: 048
  9. ESIDRIX [Concomitant]
     Route: 048
  10. LEVOTHYROXINE SODIUM [Concomitant]
     Route: 048
  11. FOSAMAX [Concomitant]
     Route: 048
  12. METHOTREXATE [Concomitant]
     Route: 058
  13. SYMBICORT [Concomitant]
     Route: 055

REACTIONS (2)
  - PULMONARY EMBOLISM [None]
  - THERAPEUTIC AGENT TOXICITY [None]
